FAERS Safety Report 5936304-0 (Version None)
Quarter: 2008Q4

REPORT INFORMATION
  Report Type: 
  Country: None (occurrence: None)
  Receive Date: 20081030
  Receipt Date: 20081023
  Transmission Date: 20090506
  Serious: Yes (Death, Hospitalization)
  Sender: FDA-Public Use
  Company Number: TW-AVENTIS-200820086GDDC

PATIENT

DRUGS (2)
  1. RIFATER [Suspect]
     Indication: TUBERCULOSIS
     Route: 048
     Dates: start: 20060222
  2. RIFATER [Suspect]
     Indication: TUBERCULOUS PLEURISY
     Route: 048
     Dates: start: 20060222

REACTIONS (1)
  - STEVENS-JOHNSON SYNDROME [None]
